FAERS Safety Report 21481726 (Version 2)
Quarter: 2022Q4

REPORT INFORMATION
  Report Type: Report from Study
  Country: PT (occurrence: None)
  Receive Date: 20221020
  Receipt Date: 20221031
  Transmission Date: 20230113
  Serious: Yes (Hospitalization)
  Sender: FDA-Public Use
  Company Number: PT-Merck Healthcare KGaA-9358101

PATIENT
  Age: 70 Year
  Sex: Female

DRUGS (1)
  1. REBIF [Suspect]
     Active Substance: INTERFERON BETA-1A
     Indication: Multiple sclerosis
     Route: 058
     Dates: start: 20000101, end: 20221007

REACTIONS (4)
  - Ischaemic stroke [Recovering/Resolving]
  - Dyslipidaemia [Recovered/Resolved]
  - Hypertension [Unknown]
  - Balance disorder [Unknown]

NARRATIVE: CASE EVENT DATE: 20200101
